FAERS Safety Report 8781075 (Version 2)
Quarter: 2013Q3

REPORT INFORMATION
  Report Type: Spontaneous
  Country: US (occurrence: US)
  Receive Date: 20120913
  Receipt Date: 20130902
  Transmission Date: 20140515
  Serious: No
  Sender: FDA-Public Use
  Company Number: US-009507513-1209USA002914

PATIENT
  Age: 25 Year
  Sex: Female
  Weight: 81.63 kg

DRUGS (2)
  1. MIRALAX [Suspect]
     Indication: CONSTIPATION
     Dosage: 17 G, TID
     Route: 048
     Dates: start: 20120728, end: 20120810
  2. MIRALAX [Suspect]
     Indication: MEDICAL OBSERVATION

REACTIONS (7)
  - Mobility decreased [Recovered/Resolved]
  - Dysarthria [Recovered/Resolved]
  - Vision blurred [Recovered/Resolved]
  - Slow speech [Recovered/Resolved]
  - Dizziness [Recovered/Resolved]
  - Malaise [Recovered/Resolved]
  - Prescribed overdose [Recovered/Resolved]
